FAERS Safety Report 24622019 (Version 1)
Quarter: 2024Q4

REPORT INFORMATION
  Report Type: Spontaneous
  Country: US (occurrence: US)
  Receive Date: 20241114
  Receipt Date: 20241114
  Transmission Date: 20250114
  Serious: No
  Sender: DERMAVANT SCIENCES
  Company Number: US-Dermavant-001306

PATIENT
  Sex: Male

DRUGS (1)
  1. VTAMA [Suspect]
     Active Substance: TAPINAROF
     Indication: Psoriasis

REACTIONS (2)
  - Feeling abnormal [Unknown]
  - Accidental exposure to product [Unknown]
